FAERS Safety Report 17004393 (Version 2)
Quarter: 2019Q4

REPORT INFORMATION
  Report Type: Spontaneous
  Country: US (occurrence: US)
  Receive Date: 20191107
  Receipt Date: 20191226
  Transmission Date: 20200122
  Serious: No
  Sender: FDA-Public Use
  Company Number: US-ASTRAZENECA-2019SF45244

PATIENT
  Age: 20064 Day
  Sex: Female

DRUGS (1)
  1. BYDUREON BCISE [Suspect]
     Active Substance: EXENATIDE
     Indication: DIABETES MELLITUS
     Route: 058

REACTIONS (9)
  - Injection site hypoaesthesia [Unknown]
  - Diabetes mellitus inadequate control [Not Recovered/Not Resolved]
  - Device issue [Unknown]
  - Device signal detection issue [Unknown]
  - Injection site pruritus [Unknown]
  - Headache [Unknown]
  - Injection site mass [Unknown]
  - Needle issue [Unknown]
  - Injection site pain [Unknown]

NARRATIVE: CASE EVENT DATE: 20191007
